FAERS Safety Report 18023858 (Version 1)
Quarter: 2020Q3

REPORT INFORMATION
  Report Type: Spontaneous
  Country: FR (occurrence: FR)
  Receive Date: 20200715
  Receipt Date: 20200715
  Transmission Date: 20201103
  Serious: Yes (Hospitalization, Other)
  Sender: FDA-Public Use
  Company Number: FR-SA-2020SA179056

PATIENT

DRUGS (15)
  1. RIFADINE [Suspect]
     Active Substance: RIFAMPIN
     Indication: PULMONARY TUBERCULOSIS
     Dosage: 600 MG QD
     Route: 048
     Dates: start: 20200531, end: 20200610
  2. DIFFU K [Concomitant]
     Active Substance: POTASSIUM CHLORIDE
  3. FLUCONAZOLE. [Concomitant]
     Active Substance: FLUCONAZOLE
  4. PRINCI B [Concomitant]
  5. PIRILENE [Suspect]
     Active Substance: PYRAZINAMIDE
     Indication: PULMONARY TUBERCULOSIS
     Dosage: 1.5 G QD
     Route: 048
     Dates: start: 20200531, end: 20200609
  6. AMBISOME [Suspect]
     Active Substance: AMPHOTERICIN B
     Indication: CANDIDA INFECTION
     Dosage: 3 MG/KG QD
     Route: 042
     Dates: start: 20200604, end: 20200606
  7. INNOHEP [Concomitant]
     Active Substance: TINZAPARIN SODIUM
  8. BISOPROLOL [Concomitant]
     Active Substance: BISOPROLOL
  9. COMBIGAN [Concomitant]
     Active Substance: BRIMONIDINE TARTRATE\TIMOLOL MALEATE
  10. METOPIMAZINE [Suspect]
     Active Substance: METOPIMAZINE
     Indication: NAUSEA
     Dosage: 1 DF QD
     Route: 048
     Dates: start: 20200608, end: 20200610
  11. DEXAMBUTOL [Suspect]
     Active Substance: ETHAMBUTOL HYDROCHLORIDE
     Indication: PULMONARY TUBERCULOSIS
     Dosage: 1 G QD
     Route: 048
     Dates: start: 20200531, end: 20200609
  12. REFRESH CELLUVISC [Concomitant]
     Active Substance: CARBOXYMETHYLCELLULOSE SODIUM
  13. RIFINAH [Suspect]
     Active Substance: ISONIAZID\RIFAMPIN
     Indication: PULMONARY TUBERCULOSIS
     Dosage: 2 DF QD( 300MG/600MG/DAY)
     Route: 048
     Dates: start: 20200531, end: 20200609
  14. VALACICLOVIR [Concomitant]
     Active Substance: VALACYCLOVIR HYDROCHLORIDE
  15. ALFUZOSIN HYDROCHLORIDE. [Concomitant]
     Active Substance: ALFUZOSIN HYDROCHLORIDE

REACTIONS (1)
  - Hepatocellular injury [Recovering/Resolving]

NARRATIVE: CASE EVENT DATE: 20200609
